FAERS Safety Report 11374001 (Version 1)
Quarter: 2015Q3

REPORT INFORMATION
  Report Type: Spontaneous
  Country: US (occurrence: None)
  Receive Date: 20150811
  Receipt Date: 20150811
  Transmission Date: 20151125
  Serious: Yes (Other)
  Sender: FDA-Public Use
  Company Number: ABR_02322_2015

PATIENT
  Age: 63 Year
  Sex: Male
  Weight: 106.14 kg

DRUGS (1)
  1. EDARBYCLOR [Suspect]
     Active Substance: AZILSARTAN KAMEDOXOMIL\CHLORTHALIDONE
     Indication: HYPERTENSION
     Dosage: 1 DF QD 40/25MG ORAL)
     Route: 048
     Dates: start: 201301, end: 2015

REACTIONS (2)
  - Blood creatinine increased [None]
  - Protein total increased [None]

NARRATIVE: CASE EVENT DATE: 2015
